FAERS Safety Report 4976493-8 (Version None)
Quarter: 2006Q2

REPORT INFORMATION
  Report Type: 
  Country: None (occurrence: None)
  Receive Date: 20060419
  Receipt Date: 20060202
  Transmission Date: 20061013
  Serious: Yes (Hospitalization)
  Sender: FDA-Public Use
  Company Number: 2006AP00606

PATIENT
  Age: 20905 Day
  Sex: Female

DRUGS (15)
  1. DIPRIVAN [Suspect]
     Indication: GENERAL ANAESTHESIA
     Dosage: TARGET BLOOD CONCENTRATION 0-5 UG/ML
     Route: 042
     Dates: start: 20050126, end: 20050126
  2. XYLOCAINE [Suspect]
     Indication: EPIDURAL ANAESTHESIA
     Route: 008
     Dates: start: 20050126, end: 20050126
  3. MARCAINE [Suspect]
     Indication: EPIDURAL ANAESTHESIA
     Route: 008
     Dates: start: 20050126, end: 20050126
  4. MEROPEN [Suspect]
     Route: 041
     Dates: start: 20050126, end: 20050127
  5. ALTAT [Suspect]
     Indication: ANAESTHETIC PREMEDICATION
     Route: 048
     Dates: start: 20050125, end: 20050125
  6. ALTAT [Suspect]
     Route: 048
     Dates: start: 20050126, end: 20050126
  7. HORIZON [Suspect]
     Indication: ANAESTHETIC PREMEDICATION
     Route: 048
     Dates: start: 20050125, end: 20050125
  8. FENTANEST [Suspect]
     Indication: ANALGESIC EFFECT
     Route: 042
     Dates: start: 20050126, end: 20050126
  9. DROLEPTAN [Suspect]
     Route: 042
     Dates: start: 20060126, end: 20060126
  10. IOPAMIRON 150 [Suspect]
     Dates: start: 20050126, end: 20050126
  11. LEPETAN [Suspect]
     Indication: ANALGESIC EFFECT
     Route: 008
     Dates: start: 20050126, end: 20050126
  12. ADONA [Concomitant]
     Route: 041
     Dates: start: 20050126, end: 20050130
  13. TRANSAMIN [Concomitant]
     Route: 041
     Dates: start: 20050126, end: 20050130
  14. PRIMPERAN TAB [Concomitant]
     Route: 041
     Dates: start: 20050126, end: 20050130
  15. LIVAL [Concomitant]
     Indication: HYPERLIPIDAEMIA
     Route: 048

REACTIONS (3)
  - ALANINE AMINOTRANSFERASE INCREASED [None]
  - ASPARTATE AMINOTRANSFERASE INCREASED [None]
  - LIVER DISORDER [None]
